FAERS Safety Report 15893812 (Version 1)
Quarter: 2019Q1

REPORT INFORMATION
  Report Type: Spontaneous
  Country: US (occurrence: US)
  Receive Date: 20190109
  Receipt Date: 20190109
  Transmission Date: 20190417
  Serious: Yes (Life-Threatening)
  Sender: FDA-Public Use
  Company Number: None

PATIENT
  Age: 66 Year
  Sex: Female
  Weight: 70.1 kg

DRUGS (2)
  1. CEFTRIAXONE. [Suspect]
     Active Substance: CEFTRIAXONE
     Indication: DRUG THERAPY
     Route: 030
     Dates: start: 20181218
  2. LIDOCAINE. [Suspect]
     Active Substance: LIDOCAINE
     Indication: DRUG THERAPY
     Route: 030
     Dates: start: 20181218

REACTIONS (2)
  - Pruritus [None]
  - Cardiac arrest [None]

NARRATIVE: CASE EVENT DATE: 20181218
